FAERS Safety Report 7731179-1 (Version None)
Quarter: 2011Q3

REPORT INFORMATION
  Report Type: 
  Country: None (occurrence: None)
  Receive Date: 20110906
  Receipt Date: 20110830
  Transmission Date: 20111222
  Serious: Yes (Other)
  Sender: FDA-Public Use
  Company Number: PHHY2011FR77870

PATIENT
  Age: 37 Year

DRUGS (12)
  1. DACARBAZINE [Suspect]
     Dosage: TWO CYCLES
  2. PREDNISONE [Suspect]
     Dosage: TWO CYCLES
  3. VINDESINE [Suspect]
     Dosage: TWO CYCLES
  4. REVLIMID [Suspect]
     Dosage: TWO CYCLES
  5. ETOPOSIDE [Suspect]
     Dosage: TWO CYCLES
  6. MECHLORETHAMINE [Suspect]
     Dosage: TWO CYCLES
  7. MELPHALAN [Suspect]
     Dosage: TWO CYCLES
  8. VINCRISTINE [Suspect]
     Dosage: TWO CYCLES
  9. ADRIAMYCIN PFS [Suspect]
     Dosage: TWO CYCLES
  10. BLEOMYCIN SULFATE [Suspect]
     Dosage: TWO CYCLES
  11. PROCARBAZINE HYDROCHLORIDE [Suspect]
     Dosage: TWO CYCLES
  12. CYTARABINE [Suspect]
     Dosage: TWO CYCLES

REACTIONS (4)
  - HODGKIN'S DISEASE RECURRENT [None]
  - ANAEMIA [None]
  - NEUTROPENIA [None]
  - THROMBOCYTOPENIA [None]
